FAERS Safety Report 15997736 (Version 7)
Quarter: 2019Q4

REPORT INFORMATION
  Report Type: Spontaneous
  Country: US (occurrence: US)
  Receive Date: 20190222
  Receipt Date: 20191125
  Transmission Date: 20200122
  Serious: Yes (Hospitalization, Other)
  Sender: FDA-Public Use
  Company Number: US-IMPAX LABORATORIES, LLC-2019-IPXL-00576

PATIENT
  Age: 59 Year
  Sex: Female
  Weight: 37 kg

DRUGS (11)
  1. RYTARY [Suspect]
     Active Substance: CARBIDOPA\LEVODOPA
     Indication: PARKINSON^S DISEASE
     Dosage: 36.25-145MG, 1 TO 2 CAPSULE EVERY 4 HOURS, AS DIRECTED
     Route: 048
     Dates: start: 2017
  2. RYTARY [Suspect]
     Active Substance: CARBIDOPA\LEVODOPA
     Dosage: 23.75-95MG, AT 7AM AND 7 PM
     Route: 048
     Dates: start: 20191113
  3. RYTARY [Suspect]
     Active Substance: CARBIDOPA\LEVODOPA
     Dosage: 23.75-95MG, 2 DOSAGE FORM, 3 /DAY
     Route: 048
  4. MIRTAZAPINE. [Concomitant]
     Active Substance: MIRTAZAPINE
     Indication: INSOMNIA
     Dosage: 15 MILLIGRAM, DAILY (NIGHT HELP TO HER SLEEP)
     Route: 065
  5. RYTARY [Suspect]
     Active Substance: CARBIDOPA\LEVODOPA
     Dosage: 36.25-145MG, 7 DOSAGE FORM, DAILY, 2 CAPS AT 7AM-11AM, 3PM AND 1 CAP AT 7PM
  6. TROSPIUM [Concomitant]
     Active Substance: TROSPIUM
     Indication: BLADDER DYSFUNCTION
     Dosage: 20 MILLIGRAM, BEDTIME
  7. TYLENOL [Concomitant]
     Active Substance: ACETAMINOPHEN
     Indication: PAIN
     Dosage: BID, TWICE A DAY (1 IN MORNING AND 1 AT NIGHT)
     Route: 065
  8. RYTARY [Suspect]
     Active Substance: CARBIDOPA\LEVODOPA
     Dosage: 23.75-95MG, 2 DOSAGE FORM, 3 /DAY
     Dates: start: 20190808
  9. RYTARY [Suspect]
     Active Substance: CARBIDOPA\LEVODOPA
     Dosage: 36.25-145MG, 1 CAPSULES, 2 /DAY, AT 11AM AND 3PM
     Route: 048
     Dates: start: 20191113
  10. DETROL [Suspect]
     Active Substance: TOLTERODINE TARTRATE
     Indication: INCONTINENCE
     Dosage: 4 MILLIGRAM, QD
     Route: 048
  11. CARBIDOPA AND LEVODOPA [Concomitant]
     Active Substance: CARBIDOPA\LEVODOPA
     Indication: PRODUCT USED FOR UNKNOWN INDICATION
     Dosage: UNK, 25-100MG TABLET AS NEEDED HALF A TABLET
     Route: 065

REACTIONS (5)
  - Dysphagia [Unknown]
  - Weight increased [Unknown]
  - Choking [Recovering/Resolving]
  - Device occlusion [Unknown]
  - Product use issue [Unknown]

NARRATIVE: CASE EVENT DATE: 20181031
